FAERS Safety Report 18401912 (Version 1)
Quarter: 2020Q4

REPORT INFORMATION
  Report Type: Spontaneous
  Country: GB (occurrence: GB)
  Receive Date: 20201019
  Receipt Date: 20201019
  Transmission Date: 20210114
  Serious: Yes (Hospitalization)
  Sender: FDA-Public Use
  Company Number: NVSC2020GB279127

PATIENT
  Age: 89 Year
  Sex: Female

DRUGS (5)
  1. RISPERIDONE. [Suspect]
     Active Substance: RISPERIDONE
     Indication: HALLUCINATION
     Dosage: 1000 UG, QD
     Route: 048
     Dates: start: 20200812, end: 20200908
  2. PARACETAMOL [Concomitant]
     Active Substance: ACETAMINOPHEN
     Indication: PRODUCT USED FOR UNKNOWN INDICATION
     Dosage: 1 G, PRN
     Route: 065
  3. QVAR [Concomitant]
     Active Substance: BECLOMETHASONE DIPROPIONATE
     Indication: PRODUCT USED FOR UNKNOWN INDICATION
     Dosage: 4 DF, QD (PUFFS)
     Route: 055
  4. SALBUTAMOL [Concomitant]
     Active Substance: ALBUTEROL
     Indication: PRODUCT USED FOR UNKNOWN INDICATION
     Dosage: 2 DF (PUFFS)
     Route: 055
  5. Q.V [Concomitant]
     Indication: PRODUCT USED FOR UNKNOWN INDICATION
     Dosage: 1 DF, QD (LIBERALLY)
     Route: 065

REACTIONS (6)
  - Oral mucosa erosion [Recovering/Resolving]
  - Pustular psoriasis [Recovering/Resolving]
  - Renal impairment [Recovered/Resolved]
  - Skin exfoliation [Unknown]
  - Rash macular [Recovering/Resolving]
  - Liver function test increased [Recovering/Resolving]

NARRATIVE: CASE EVENT DATE: 20200908
